FAERS Safety Report 7938012-3 (Version None)
Quarter: 2011Q4

REPORT INFORMATION
  Report Type: 
  Country: None (occurrence: None)
  Receive Date: 20111123
  Receipt Date: 20111117
  Transmission Date: 20120403
  Serious: Yes (Hospitalization, Other)
  Sender: FDA-Public Use
  Company Number: BR-US-EMD SERONO, INC.-7065824

PATIENT
  Sex: Female

DRUGS (6)
  1. PHENOBARBITAL TAB [Concomitant]
  2. CEFALIV [Concomitant]
  3. DEPAKENE [Concomitant]
  4. REBIF [Suspect]
     Indication: RELAPSING-REMITTING MULTIPLE SCLEROSIS
     Dates: start: 20110204
  5. CLONAZEPAM [Concomitant]
  6. CARBAMAZEPINE [Concomitant]

REACTIONS (11)
  - NERVOUSNESS [None]
  - HEADACHE [None]
  - OEDEMA PERIPHERAL [None]
  - INJECTION SITE ERYTHEMA [None]
  - MICTURITION URGENCY [None]
  - PAIN IN EXTREMITY [None]
  - MALAISE [None]
  - PSYCHOTIC DISORDER [None]
  - EPILEPSY [None]
  - ANXIETY [None]
  - DIZZINESS [None]
